FAERS Safety Report 9830930 (Version 2)
Quarter: 2014Q1

REPORT INFORMATION
  Report Type: Spontaneous
  Country: JP (occurrence: JP)
  Receive Date: 20140120
  Receipt Date: 20140224
  Transmission Date: 20141002
  Serious: Yes (Death, Hospitalization, Other)
  Sender: FDA-Public Use
  Company Number: PHHY2014JP004915

PATIENT
  Age: 74 Year
  Sex: Female
  Weight: 45 kg

DRUGS (3)
  1. FEMARA [Suspect]
     Indication: BREAST CANCER METASTATIC
     Dosage: 2.5 MG, DAILY
     Route: 048
     Dates: start: 20081216, end: 20131130
  2. FLUMETHOLON [Concomitant]
     Dosage: UNK UKN, UNK
  3. HYALEIN [Concomitant]
     Dosage: UNK UKN, UNK

REACTIONS (7)
  - Mesenteric artery thrombosis [Fatal]
  - Enterocolitis [Unknown]
  - Disseminated intravascular coagulation [Unknown]
  - Platelet count decreased [Unknown]
  - Suture rupture [Unknown]
  - Abdominal pain lower [Unknown]
  - Diarrhoea [Unknown]
